FAERS Safety Report 14025712 (Version 2)
Quarter: 2017Q4

REPORT INFORMATION
  Report Type: Report from Study
  Country: CA (occurrence: CA)
  Receive Date: 20170929
  Receipt Date: 20171020
  Transmission Date: 20180321
  Serious: Yes (Death)
  Sender: FDA-Public Use
  Company Number: CA-HLSUS-2017-CA-001017

PATIENT
  Age: 84 Year
  Sex: Male

DRUGS (3)
  1. CIPRO [Concomitant]
     Active Substance: CIPROFLOXACIN HYDROCHLORIDE
     Indication: DELIRIUM
     Dosage: 500MG TWICE A DAY
     Route: 048
     Dates: start: 20170919
  2. CLOZARIL [Suspect]
     Active Substance: CLOZAPINE
     Indication: DEMENTIA
     Dosage: 50MG DAILY NOON + 75MG DAILY BED TIME
     Route: 048
     Dates: start: 20160304, end: 20170922
  3. CHLORAL HYDRATE [Concomitant]
     Active Substance: CHLORAL HYDRATE
     Dosage: 500MG DAILY BED TIME
     Route: 048
     Dates: start: 20170606

REACTIONS (3)
  - Hip fracture [Unknown]
  - Pneumonia [Fatal]
  - Fall [Unknown]

NARRATIVE: CASE EVENT DATE: 20170922
